FAERS Safety Report 20838351 (Version 3)
Quarter: 2022Q3

REPORT INFORMATION
  Report Type: Spontaneous
  Country: US (occurrence: US)
  Receive Date: 20220517
  Receipt Date: 20220720
  Transmission Date: 20221026
  Serious: No
  Sender: FDA-Public Use
  Company Number: US-PFIZER INC-202200593029

PATIENT
  Age: 11 Year
  Sex: Female
  Weight: 81.19 kg

DRUGS (1)
  1. GENOTROPIN [Suspect]
     Active Substance: SOMATROPIN
     Indication: Prader-Willi syndrome
     Dosage: UNK
     Dates: start: 2014

REACTIONS (3)
  - Device use issue [Unknown]
  - Device power source issue [Unknown]
  - Device mechanical issue [Unknown]
